FAERS Safety Report 4376832-5 (Version None)
Quarter: 2004Q2

REPORT INFORMATION
  Report Type: 
  Country: None (occurrence: None)
  Receive Date: 20040609
  Receipt Date: 20040218
  Transmission Date: 20050107
  Serious: Yes (Other)
  Sender: FDA-Public Use
  Company Number: PHEH2004US02135

PATIENT

DRUGS (1)
  1. GLEEVEC [Suspect]
     Dosage: 400 MG QD ORAL
     Route: 048

REACTIONS (1)
  - COLITIS [None]
